FAERS Safety Report 5071396-5 (Version None)
Quarter: 2006Q3

REPORT INFORMATION
  Report Type: 
  Country: None (occurrence: None)
  Receive Date: 20060804
  Receipt Date: 20060314
  Transmission Date: 20061208
  Serious: No
  Sender: FDA-Public Use
  Company Number: US-AMGEN-US172479

PATIENT
  Age: 79 Year
  Sex: Male

DRUGS (9)
  1. ARANESP [Suspect]
     Indication: ANAEMIA
     Dates: start: 20051213
  2. PROCRIT [Suspect]
     Indication: ANAEMIA
     Dates: start: 20051101, end: 20051129
  3. IRON [Concomitant]
  4. COLESTYRAMINE [Concomitant]
  5. FUROSEMIDE [Concomitant]
  6. MESALAMINE [Concomitant]
  7. VALSARTAN [Concomitant]
  8. ALENDRONATE SODIUM [Concomitant]
  9. REMICADE [Concomitant]

REACTIONS (2)
  - GOUT [None]
  - OEDEMA PERIPHERAL [None]
